FAERS Safety Report 6045265-8 (Version None)
Quarter: 2009Q1

REPORT INFORMATION
  Report Type: 
  Country: None (occurrence: None)
  Receive Date: 20090121
  Receipt Date: 20090112
  Transmission Date: 20090719
  Serious: Yes (Other)
  Sender: FDA-Public Use
  Company Number: PHEH2007US12077

PATIENT
  Sex: Female
  Weight: 74.83 kg

DRUGS (2)
  1. ZOMETA [Suspect]
     Indication: NEOPLASM MALIGNANT
     Dosage: UNK
     Dates: end: 20060101
  2. CHLORHEXIDINE GLUCONATE [Concomitant]

REACTIONS (24)
  - ABASIA [None]
  - ANHEDONIA [None]
  - ANXIETY [None]
  - ASTHENIA [None]
  - CARDIAC OPERATION [None]
  - CENTRAL NERVOUS SYSTEM LESION [None]
  - CRANIOTOMY [None]
  - DEFORMITY [None]
  - DEPRESSION [None]
  - DISCOMFORT [None]
  - EMOTIONAL DISTRESS [None]
  - GASTROOESOPHAGEAL REFLUX DISEASE [None]
  - HYPERTENSION [None]
  - HYPERTROPHIC CARDIOMYOPATHY [None]
  - INJURY [None]
  - LIFE EXPECTANCY SHORTENED [None]
  - MYOPATHY [None]
  - OSTEOARTHRITIS [None]
  - OSTEONECROSIS [None]
  - PAIN [None]
  - RESTLESS LEGS SYNDROME [None]
  - SHOULDER ARTHROPLASTY [None]
  - THYROIDECTOMY [None]
  - TOOTH FRACTURE [None]
